FAERS Safety Report 9929255 (Version 1)
Quarter: 2014Q1

REPORT INFORMATION
  Report Type: Spontaneous
  Country: ES (occurrence: ES)
  Receive Date: 20140227
  Receipt Date: 20140227
  Transmission Date: 20141002
  Serious: Yes (Other)
  Sender: FDA-Public Use
  Company Number: ES-GLAXOSMITHKLINE-B0972858A

PATIENT
  Age: 39 Year
  Sex: Female

DRUGS (1)
  1. NIQUITIN CQ 4MG LOZENGE [Suspect]
     Indication: EX-TOBACCO USER
     Dosage: 4MG PER DAY
     Route: 002
     Dates: start: 20140121, end: 20140121

REACTIONS (5)
  - Laryngeal oedema [Recovered/Resolved]
  - Pharyngeal inflammation [Recovered/Resolved]
  - Pharyngeal erythema [Recovered/Resolved]
  - Suffocation feeling [Recovered/Resolved]
  - Anxiety [Recovered/Resolved]
